FAERS Safety Report 8150732-7 (Version None)
Quarter: 2012Q1

REPORT INFORMATION
  Report Type: 
  Country: None (occurrence: None)
  Receive Date: 20120220
  Receipt Date: 20120204
  Transmission Date: 20120608
  Serious: Yes (Other)
  Sender: FDA-Public Use
  Company Number: US-BAYER-2012-012147

PATIENT
  Sex: Female

DRUGS (1)
  1. NEXAVAR [Suspect]
     Indication: HEPATIC NEOPLASM MALIGNANT
     Dosage: 400 MG, BID
     Route: 048
     Dates: start: 20120203

REACTIONS (7)
  - CHEST DISCOMFORT [None]
  - MASS [None]
  - OROPHARYNGEAL BLISTERING [None]
  - DYSPHONIA [None]
  - DECREASED APPETITE [None]
  - RASH [None]
  - HEADACHE [None]
